FAERS Safety Report 16274637 (Version 3)
Quarter: 2019Q2

REPORT INFORMATION
  Report Type: Spontaneous
  Country: JP (occurrence: JP)
  Receive Date: 20190506
  Receipt Date: 20190614
  Transmission Date: 20190711
  Serious: Yes (Life-Threatening, Hospitalization, Other)
  Sender: FDA-Public Use
  Company Number: JP-ACCORD-097927

PATIENT
  Age: 53 Year
  Sex: Female
  Weight: 30.9 kg

DRUGS (2)
  1. METHOTREXATE. [Suspect]
     Active Substance: METHOTREXATE
     Indication: RHEUMATOID ARTHRITIS
     Dosage: FOR 8 YEARS
     Route: 048
     Dates: start: 2010, end: 2018
  2. LEVOTHYROXINE/LEVOTHYROXINE SODIUM [Concomitant]
     Indication: THYROIDITIS CHRONIC
     Dates: start: 2010

REACTIONS (3)
  - Epstein-Barr virus infection [Unknown]
  - Computerised tomogram thorax abnormal [Recovered/Resolved]
  - Lymphoproliferative disorder [Recovered/Resolved]

NARRATIVE: CASE EVENT DATE: 2018
